FAERS Safety Report 9064993 (Version 1)
Quarter: 2013Q1

REPORT INFORMATION
  Report Type: Spontaneous
  Country: US (occurrence: US)
  Receive Date: 20130128
  Receipt Date: 20130128
  Transmission Date: 20140127
  Serious: No
  Sender: FDA-Public Use
  Company Number: US-B.I. PHARMACEUTICALS,INC./RIDGEFIELD-2013-BI-00075BP

PATIENT
  Sex: Female
  Weight: 60 kg

DRUGS (3)
  1. CATAPRES TTS [Suspect]
     Indication: TOURETTE^S DISORDER
     Dosage: 0.2 MG
     Route: 061
     Dates: start: 201210, end: 201211
  2. CATAPRES [Suspect]
     Indication: TOURETTE^S DISORDER
     Dosage: 0.3 MG
     Route: 048
     Dates: start: 201207, end: 201210
  3. CATAPRES [Suspect]
     Dosage: 0.3 MG
     Route: 048
     Dates: start: 201211

REACTIONS (2)
  - Burns second degree [Recovered/Resolved]
  - Skin discolouration [Recovered/Resolved]
